FAERS Safety Report 12898843 (Version 1)
Quarter: 2016Q4

REPORT INFORMATION
  Report Type: Report from Study
  Country: AT (occurrence: AT)
  Receive Date: 20161101
  Receipt Date: 20161101
  Transmission Date: 20170207
  Serious: Yes (Disabling)
  Sender: FDA-Public Use
  Company Number: AT-ROCHE-1847385

PATIENT
  Age: 11 Year
  Sex: Female
  Weight: 30.5 kg

DRUGS (16)
  1. CYCLOPHOSPHAMIDE. [Suspect]
     Active Substance: CYCLOPHOSPHAMIDE
     Indication: MEDULLOBLASTOMA
     Dosage: SINCE 05/SEP/2016?LAST DOSE PRIOR TO SAE: 15/SEP/2016?ALTERNATING 21-DAY CYCLES
     Route: 048
     Dates: start: 20140811
  2. EUSAPRIM (AUSTRIA) [Concomitant]
     Indication: PROPHYLAXIS
     Dosage: 2X56 MG (MON- WED)
     Route: 048
     Dates: start: 20140811
  3. AMLODIPIN [Concomitant]
     Active Substance: AMLODIPINE BESYLATE
     Indication: HYPERTENSION
     Route: 048
     Dates: start: 20150301
  4. EUTHYROX [Concomitant]
     Active Substance: LEVOTHYROXINE SODIUM
     Indication: HYPOTHYROIDISM
     Route: 048
     Dates: start: 20140805
  5. LEVEBON [Concomitant]
     Indication: PROPHYLAXIS
     Route: 048
     Dates: start: 20141020
  6. SODIUM CHLORIDE. [Concomitant]
     Active Substance: SODIUM CHLORIDE
     Indication: HYPONATRAEMIA
     Dosage: 1 MOLAR
     Route: 048
     Dates: start: 20150129
  7. ASTONIN H [Concomitant]
     Indication: HYPONATRAEMIA
     Route: 048
     Dates: start: 20150129
  8. ETOPOSIDE. [Suspect]
     Active Substance: ETOPOSIDE
     Indication: MEDULLOBLASTOMA
     Dosage: LAST DOSE PRIOR TO SAE: 15/SEP/2016
     Route: 048
     Dates: start: 20140811
  9. LASIX [Concomitant]
     Active Substance: FUROSEMIDE
     Route: 048
     Dates: start: 20150310
  10. BEVACIZUMAB [Suspect]
     Active Substance: BEVACIZUMAB
     Indication: MEDULLOBLASTOMA
     Dosage: LAST DOSE PRIOR TO SAE: 15/SEP/2016
     Route: 042
     Dates: start: 20140811
  11. CYTARABINE. [Suspect]
     Active Substance: CYTARABINE
     Indication: MEDULLOBLASTOMA
     Dosage: LIPOSOMAL?LAST DOSE PRIOR TO SAE: 15/SEP/2016
     Route: 037
     Dates: start: 20140811
  12. CELECOXIB. [Suspect]
     Active Substance: CELECOXIB
     Indication: MEDULLOBLASTOMA
     Dosage: LAST DOSE PRIOR TO SAE: 15/SEP/2016
     Route: 048
     Dates: start: 20140811
  13. THALIDOMIDE [Suspect]
     Active Substance: THALIDOMIDE
     Indication: MEDULLOBLASTOMA
     Dosage: LAST DOSE PRIOR TO SAE: 15/SEP/2016
     Route: 048
     Dates: start: 20140811
  14. OLEOVIT D3 [Concomitant]
     Active Substance: CHOLECALCIFEROL
     Indication: VITAMIN D DEFICIENCY
     Dosage: 1200 IE
     Route: 048
     Dates: start: 20150129
  15. SUPRADYN [Concomitant]
     Active Substance: ASCORBIC ACID\MINERALS\VITAMINS
     Dosage: 1 TAB
     Route: 048
     Dates: start: 20150206
  16. FENOFIBRATE. [Suspect]
     Active Substance: FENOFIBRATE
     Indication: MEDULLOBLASTOMA
     Dosage: LAST DOSE PRIOR TO SAE: 15/SEP/2016
     Route: 048
     Dates: start: 20140811

REACTIONS (1)
  - Hypoacusis [Recovered/Resolved with Sequelae]

NARRATIVE: CASE EVENT DATE: 20160915
